FAERS Safety Report 4527090-X (Version None)
Quarter: 2004Q4

REPORT INFORMATION
  Report Type: 
  Country: None (occurrence: None)
  Receive Date: 20041129
  Receipt Date: 20040409
  Transmission Date: 20050328
  Serious: Yes (Hospitalization, Other)
  Sender: FDA-Public Use
  Company Number: USA030435237

PATIENT
  Age: 32 Year
  Sex: Female
  Weight: 143 kg

DRUGS (8)
  1. ZYPREXA [Suspect]
     Indication: DELUSION
     Dosage: 30 MG/DAY
     Dates: start: 19960101, end: 20030401
  2. ZYPREXA [Suspect]
     Indication: HALLUCINATION
     Dosage: 30 MG/DAY
     Dates: start: 19960101, end: 20030401
  3. ZYPREXA [Suspect]
     Indication: HALLUCINATION
     Dosage: 30 MG/DAY
     Dates: start: 20030401
  4. DEPAKOTE [Concomitant]
  5. ATIVAN [Concomitant]
  6. PAXIL [Concomitant]
  7. WELLBUTRIN (BUPROPION HYDRCHLORIDE) [Concomitant]
  8. HALDOL [Concomitant]

REACTIONS (5)
  - DEPRESSION [None]
  - DIABETES MELLITUS [None]
  - HALLUCINATION, AUDITORY [None]
  - PRESCRIBED OVERDOSE [None]
  - WEIGHT INCREASED [None]
